FAERS Safety Report 9799847 (Version 2)
Quarter: 2014Q1

REPORT INFORMATION
  Report Type: Spontaneous
  Country: US (occurrence: US)
  Receive Date: 20140106
  Receipt Date: 20140210
  Transmission Date: 20141002
  Serious: Yes (Hospitalization)
  Sender: FDA-Public Use
  Company Number: US-GLAXOSMITHKLINE-A1055167A

PATIENT
  Age: 61 Year
  Sex: Male

DRUGS (16)
  1. ADVAIR [Suspect]
     Indication: ASTHMA
     Dosage: 1PUFF TWICE PER DAY
     Route: 055
     Dates: start: 2009
  2. CARVEDILOL [Suspect]
     Indication: ASTHMA
     Dosage: 6.25TAB TWICE PER DAY
     Route: 048
  3. ASPIRIN [Concomitant]
  4. BUPROPION [Concomitant]
  5. CELEXA [Concomitant]
  6. FUROSEMIDE [Concomitant]
  7. CLARITIN [Concomitant]
  8. ATIVAN [Concomitant]
  9. METFORMIN [Concomitant]
  10. DULERA [Concomitant]
  11. NITROGLYCERIN [Concomitant]
  12. OMEPRAZOLE [Concomitant]
  13. POTASSIUM CHLORIDE [Concomitant]
  14. SIMVASTATIN [Concomitant]
  15. SPIRONOLACTONE [Concomitant]
  16. ALBUTEROL [Concomitant]

REACTIONS (11)
  - Dizziness [Unknown]
  - Dizziness [Unknown]
  - Headache [Unknown]
  - Nausea [Unknown]
  - Nervousness [Unknown]
  - Drug administration error [Unknown]
  - Adverse drug reaction [Unknown]
  - Cardiac disorder [Unknown]
  - Investigation [Unknown]
  - Disability [Not Recovered/Not Resolved]
  - Gait disturbance [Not Recovered/Not Resolved]
